FAERS Safety Report 18004288 (Version 1)
Quarter: 2020Q3

REPORT INFORMATION
  Report Type: Report from Study
  Country: KR (occurrence: KR)
  Receive Date: 20200709
  Receipt Date: 20200709
  Transmission Date: 20201103
  Serious: No
  Sender: FDA-Public Use
  Company Number: KR-B.I. PHARMACEUTICALS,INC./RIDGEFIELD-2018-BI-017226

PATIENT
  Age: 59 Year
  Sex: Female
  Weight: 75 kg

DRUGS (5)
  1. JARDIANCE [Suspect]
     Active Substance: EMPAGLIFLOZIN
     Indication: TYPE 2 DIABETES MELLITUS
     Route: 048
     Dates: start: 20170808
  2. ROVETIN [Concomitant]
     Indication: PROPHYLAXIS
     Route: 048
     Dates: start: 20160517
  3. DIABEX [Concomitant]
     Active Substance: METFORMIN HYDROCHLORIDE
     Indication: TYPE 2 DIABETES MELLITUS
     Route: 048
     Dates: start: 20140520
  4. ROVETIN [Concomitant]
     Indication: HYPERLIPIDAEMIA
  5. LEVACALM [Concomitant]
     Indication: ESSENTIAL HYPERTENSION
     Dosage: DOSE: 10/160 MG
     Route: 048
     Dates: start: 20170905, end: 20171016

REACTIONS (1)
  - Pollakiuria [Recovered/Resolved]

NARRATIVE: CASE EVENT DATE: 20170905
